FAERS Safety Report 11326510 (Version 1)
Quarter: 2015Q3

REPORT INFORMATION
  Report Type: Spontaneous
  Country: US (occurrence: None)
  Receive Date: 20150629
  Receipt Date: 20150629
  Transmission Date: 20151125
  Serious: No
  Sender: FDA-Public Use
  Company Number: A-US2014-107574

PATIENT
  Age: 48 Year
  Sex: Female

DRUGS (8)
  1. WARFARIN [Concomitant]
     Active Substance: WARFARIN
  2. NIFEDIPINE. [Concomitant]
     Active Substance: NIFEDIPINE
  3. ALBUTEROL (SALBUTAMOL) [Concomitant]
     Active Substance: ALBUTEROL
  4. KLOR-CON (POTASSIUM CHLORIDE) [Concomitant]
  5. PREDNISONE. [Concomitant]
     Active Substance: PREDNISONE
  6. OPSUMIT [Suspect]
     Active Substance: MACITENTAN
     Indication: PULMONARY ARTERIAL HYPERTENSION
     Route: 048
     Dates: start: 20140724
  7. ACYCLOVIR. [Concomitant]
     Active Substance: ACYCLOVIR
  8. SILDENAFIL. [Concomitant]
     Active Substance: SILDENAFIL

REACTIONS (3)
  - Cough [None]
  - Drug dose omission [None]
  - Dyspnoea [None]

NARRATIVE: CASE EVENT DATE: 20141028
